FAERS Safety Report 9529632 (Version 1)
Quarter: 2013Q3

REPORT INFORMATION
  Report Type: Spontaneous
  Country: US (occurrence: US)
  Receive Date: 20130917
  Receipt Date: 20130917
  Transmission Date: 20140515
  Serious: Yes (Hospitalization)
  Sender: FDA-Public Use
  Company Number: US-B.I. PHARMACEUTICALS,INC./RIDGEFIELD-2013-BI-28611BP

PATIENT
  Age: 60 Year
  Sex: Female

DRUGS (10)
  1. SPIRIVA [Suspect]
     Indication: CHRONIC OBSTRUCTIVE PULMONARY DISEASE
     Dosage: 18 MCG
     Route: 055
     Dates: start: 2012
  2. PANTOPRAZOLE [Concomitant]
     Indication: ABDOMINAL DISCOMFORT
     Route: 048
  3. BENZONATATE [Concomitant]
     Indication: COUGH
     Route: 048
  4. CYMBALTA [Concomitant]
     Route: 048
  5. BUSPIRONE [Concomitant]
     Route: 048
  6. LISINOPRIL [Concomitant]
     Route: 048
  7. TIZANIDINE [Concomitant]
     Route: 048
  8. SIMVASTATIN [Concomitant]
     Indication: BLOOD CHOLESTEROL INCREASED
     Route: 048
  9. LAMICTAL [Concomitant]
     Route: 048
  10. RISPERIDONE [Concomitant]
     Route: 048

REACTIONS (1)
  - Myocardial infarction [Recovered/Resolved]
